FAERS Safety Report 4543290-7 (Version None)
Quarter: 2004Q4

REPORT INFORMATION
  Report Type: 
  Country: None (occurrence: None)
  Receive Date: 20041229
  Receipt Date: 20041216
  Transmission Date: 20050328
  Serious: No
  Sender: FDA-Public Use
  Company Number: 2004AP06050

PATIENT
  Age: 24 Year
  Sex: Male

DRUGS (2)
  1. ALCENOL [Suspect]
     Indication: HYPERTHYROIDISM
     Dates: start: 20030601
  2. THIAMAZOLE [Suspect]
     Indication: HYPERTHYROIDISM
     Dates: start: 20030601

REACTIONS (5)
  - HYPOXIA [None]
  - PULMONARY EMBOLISM [None]
  - PYREXIA [None]
  - RASH GENERALISED [None]
  - RESPIRATORY DISTRESS [None]
